FAERS Safety Report 7717918-4 (Version None)
Quarter: 2011Q3

REPORT INFORMATION
  Report Type: 
  Country: None (occurrence: None)
  Receive Date: 20110830
  Receipt Date: 20110819
  Transmission Date: 20111222
  Serious: Yes (Hospitalization)
  Sender: FDA-Public Use
  Company Number: CH-JNJFOC-20110808490

PATIENT
  Sex: Male
  Weight: 80 kg

DRUGS (13)
  1. PREDNISONE [Suspect]
     Indication: PROSTATE CANCER METASTATIC
     Route: 048
  2. NORVASC [Concomitant]
     Route: 048
  3. PERINDOPRIL ERBUMINE [Concomitant]
     Route: 048
  4. ALDACTONE [Concomitant]
     Route: 065
  5. FRAGMIN [Concomitant]
     Route: 065
  6. ABIRATERONE [Suspect]
     Indication: PROSTATE CANCER METASTATIC
     Route: 048
     Dates: start: 20110719
  7. ATORVASTATIN [Concomitant]
     Route: 048
  8. CALCIUM CARBONATE [Concomitant]
     Route: 048
  9. MARCOUMAR [Concomitant]
     Route: 048
  10. POTASSIUM CHLORIDE [Concomitant]
     Route: 048
  11. MOVIPREP [Concomitant]
     Route: 048
  12. ABIRATERONE [Suspect]
     Route: 048
  13. NOVALGIN [Concomitant]
     Route: 048

REACTIONS (1)
  - CEREBRAL ISCHAEMIA [None]
